FAERS Safety Report 10592335 (Version 3)
Quarter: 2015Q2

REPORT INFORMATION
  Report Type: Spontaneous
  Country: DE (occurrence: None)
  Receive Date: 20141117
  Receipt Date: 20150611
  Transmission Date: 20150821
  Serious: Yes (Hospitalization, Other)
  Sender: FDA-Public Use
  Company Number: DE2014GSK020949

PATIENT
  Age: 65 Year
  Sex: Male

DRUGS (1)
  1. MARAVIROC (MARAVIROC) UNKNOWN [Suspect]
     Active Substance: MARAVIROC
     Indication: HIV INFECTION
     Dates: start: 20120428, end: 201207

REACTIONS (2)
  - Craniocerebral injury [None]
  - Accident [None]

NARRATIVE: CASE EVENT DATE: 20130728
